FAERS Safety Report 6469851-6 (Version None)
Quarter: 2009Q4

REPORT INFORMATION
  Report Type: 
  Country: None (occurrence: None)
  Receive Date: 20091203
  Receipt Date: 20080125
  Transmission Date: 20100525
  Serious: Yes (Disabling, Other)
  Sender: FDA-Public Use
  Company Number: US-ELI_LILLY_AND_COMPANY-US200712001529

PATIENT
  Sex: Female

DRUGS (8)
  1. FORTEO [Suspect]
     Indication: OSTEOPOROSIS
     Dates: start: 20050101, end: 20060101
  2. TYLENOL W/ CODEINE [Concomitant]
  3. TOPROL-XL [Concomitant]
  4. HYDROCHLOROTHIAZIDE [Concomitant]
  5. ALTACE [Concomitant]
  6. LIPITOR [Concomitant]
  7. NEXIUM [Concomitant]
  8. XANAX [Concomitant]

REACTIONS (6)
  - BACK PAIN [None]
  - DECREASED APPETITE [None]
  - MUCOUS MEMBRANE DISORDER [None]
  - OROPHARYNGEAL PAIN [None]
  - PAIN [None]
  - VIRAL INFECTION [None]
